FAERS Safety Report 12963940 (Version 1)
Quarter: 2016Q4

REPORT INFORMATION
  Report Type: Spontaneous
  Country: DE (occurrence: DE)
  Receive Date: 20161122
  Receipt Date: 20161122
  Transmission Date: 20170207
  Serious: Yes (Other)
  Sender: FDA-Public Use
  Company Number: DE-TORRENT-00005533

PATIENT
  Age: 74 Year
  Sex: Female
  Weight: 54 kg

DRUGS (2)
  1. MAGNESIUM [Concomitant]
     Active Substance: MAGNESIUM
     Indication: PRODUCT USED FOR UNKNOWN INDICATION
  2. LEVOFLOXACIN HEUMANN 250 MG FILMTABLETTEN [Suspect]
     Active Substance: LEVOFLOXACIN
     Indication: ORAL INFECTION
     Dosage: CUMULATIVE DOSAGE: 3 FILM-COATED TABLETS
     Route: 048
     Dates: start: 20160920

REACTIONS (4)
  - Paraesthesia [Unknown]
  - Pain in extremity [Not Recovered/Not Resolved]
  - Pain in extremity [Not Recovered/Not Resolved]
  - Muscle spasms [Not Recovered/Not Resolved]

NARRATIVE: CASE EVENT DATE: 201609
